FAERS Safety Report 23591116 (Version 1)
Quarter: 2024Q1

REPORT INFORMATION
  Report Type: Spontaneous
  Country: US (occurrence: US)
  Receive Date: 20240304
  Receipt Date: 20240304
  Transmission Date: 20240410
  Serious: Yes (Other)
  Sender: FDA-Public Use
  Company Number: US-AMNEAL PHARMACEUTICALS-2024-AMRX-00636

PATIENT
  Sex: Female

DRUGS (6)
  1. RYTARY [Suspect]
     Active Substance: CARBIDOPA\LEVODOPA
     Indication: Product used for unknown indication
     Dosage: 3 (36.25-145 MG) CAPSULES, 3 /DAY
     Route: 048
  2. RYTARY [Suspect]
     Active Substance: CARBIDOPA\LEVODOPA
     Dosage: 3 (36.25-145 MG) CAPSULES, 4 /DAY
     Route: 048
     Dates: start: 20221230
  3. RYTARY [Suspect]
     Active Substance: CARBIDOPA\LEVODOPA
     Dosage: 1 (23.75-95 MG) CAPSULES, 4 /DAY
     Route: 048
     Dates: start: 20220103
  4. RYTARY [Suspect]
     Active Substance: CARBIDOPA\LEVODOPA
     Dosage: RYTARY 23.75-95 MG 1 CAPSULE 4 TIMES DAILY WAS ADDED TO RYTARY 35.25-145 MG 3 CAPSULES 4 TIMES DAILY
     Route: 048
     Dates: start: 20230509
  5. RYTARY [Suspect]
     Active Substance: CARBIDOPA\LEVODOPA
     Dosage: RYTARY 23.75-95 MG 2 CAPSULES WITH THE FIRST AND THIRD DOSE AND 1 CAPSULE WITH THE SECOND AND FOURTH
     Route: 048
     Dates: start: 20240126
  6. INBRIJA [Concomitant]
     Active Substance: LEVODOPA
     Indication: Product used for unknown indication
     Dosage: UNK
     Route: 065

REACTIONS (6)
  - Impaired gastric emptying [Unknown]
  - Malaise [Unknown]
  - Dyskinesia [Unknown]
  - Somnolence [Unknown]
  - Drug ineffective [Unknown]
  - Drug effect less than expected [Unknown]
